FAERS Safety Report 12836480 (Version 1)
Quarter: 2016Q4

REPORT INFORMATION
  Report Type: Spontaneous
  Country: US (occurrence: US)
  Receive Date: 20161011
  Receipt Date: 20161011
  Transmission Date: 20170207
  Serious: No
  Sender: FDA-Public Use
  Company Number: US-ABBVIE-16P-163-1715081-00

PATIENT
  Age: 40 Year
  Sex: Male

DRUGS (1)
  1. VENCLEXTA [Suspect]
     Active Substance: VENETOCLAX
     Indication: CHRONIC LYMPHOCYTIC LEUKAEMIA
     Route: 048

REACTIONS (4)
  - Rash [Unknown]
  - Upper respiratory tract infection [Recovered/Resolved]
  - Arthropod bite [Unknown]
  - Urticaria [Unknown]

NARRATIVE: CASE EVENT DATE: 201608
